FAERS Safety Report 4406655-X (Version None)
Quarter: 2004Q3

REPORT INFORMATION
  Report Type: 
  Country: None (occurrence: None)
  Receive Date: 20040720
  Receipt Date: 20040705
  Transmission Date: 20050211
  Serious: Yes (Hospitalization)
  Sender: FDA-Public Use
  Company Number: 2004-BP-05355NB

PATIENT
  Sex: 0

DRUGS (1)
  1. BI-SIFROL TABLETS (PRAMIPEXOLE DIHYDROCHLORIDE) (TA) (PRAMIPEXOLE) [Suspect]
     Indication: PARKINSON'S DISEASE
     Dosage: 2.5 MG (0.5 MG) PO
     Route: 048

REACTIONS (1)
  - MELAENA [None]
